FAERS Safety Report 6028724-3 (Version None)
Quarter: 2009Q1

REPORT INFORMATION
  Report Type: 
  Country: None (occurrence: None)
  Receive Date: 20090105
  Receipt Date: 20090105
  Transmission Date: 20090719
  Serious: No
  Sender: FDA-Public Use
  Company Number: None

PATIENT
  Age: 81 Year
  Sex: Male
  Weight: 75.75 kg

DRUGS (1)
  1. PREGABALIN [Suspect]
     Indication: POST HERPETIC NEURALGIA
     Dosage: 75 MG BID PO
     Route: 048
     Dates: start: 20080430, end: 20081203

REACTIONS (1)
  - DIZZINESS [None]
